FAERS Safety Report 4327674-8 (Version None)
Quarter: 2004Q1

REPORT INFORMATION
  Report Type: 
  Country: None (occurrence: None)
  Receive Date: 20040331
  Receipt Date: 20030922
  Transmission Date: 20041129
  Serious: Yes (Life-Threatening, Hospitalization, Other)
  Sender: FDA-Public Use
  Company Number: US-GLAXOSMITHKLINE-A0426920A

PATIENT
  Age: 40 Year
  Sex: Female
  Weight: 57.3 kg

DRUGS (5)
  1. AMERGE [Suspect]
     Indication: MIGRAINE
     Dosage: 1.25MG TWICE PER DAY
     Route: 048
     Dates: start: 20030917, end: 20030919
  2. TOPAMAX [Concomitant]
  3. PREDNISONE [Concomitant]
  4. ASPIRIN [Concomitant]
  5. LORTAB [Concomitant]

REACTIONS (9)
  - BLOOD POTASSIUM DECREASED [None]
  - CHEST DISCOMFORT [None]
  - CHEST PAIN [None]
  - CONVULSION [None]
  - CYANOSIS [None]
  - LOSS OF CONSCIOUSNESS [None]
  - MYOCARDIAL INFARCTION [None]
  - MYOCARDIAL ISCHAEMIA [None]
  - SYNCOPE [None]
